FAERS Safety Report 6081678-6 (Version None)
Quarter: 2009Q1

REPORT INFORMATION
  Report Type: 
  Country: None (occurrence: None)
  Receive Date: 20090130
  Receipt Date: 20081002
  Transmission Date: 20090719
  Serious: Yes (Other)
  Sender: FDA-Public Use
  Company Number: USEN-7K2MVG

PATIENT
  Sex: Male

DRUGS (1)
  1. DURAPREP [Suspect]
     Indication: PREOPERATIVE CARE
     Dosage: 26 ML, TOPICAL : SINGLE APPLICATION
     Route: 061

REACTIONS (5)
  - ERYTHEMA [None]
  - HYPERAESTHESIA [None]
  - PAIN [None]
  - PRURITUS [None]
  - RASH [None]
